FAERS Safety Report 8213512-X (Version None)
Quarter: 2012Q1

REPORT INFORMATION
  Report Type: 
  Country: None (occurrence: None)
  Receive Date: 20120315
  Receipt Date: 20120301
  Transmission Date: 20120608
  Serious: Yes (Life-Threatening)
  Sender: FDA-Public Use
  Company Number: US-BAUSCH-2012BL000462

PATIENT
  Age: 68 Year
  Sex: Male

DRUGS (8)
  1. ADVAIR DISKUS 100/50 [Concomitant]
     Indication: ASTHMA
     Route: 049
  2. PREDNISONE TAB [Concomitant]
     Route: 048
  3. PREDNISONE TAB [Concomitant]
     Route: 048
  4. ACETAMINOPHEN [Concomitant]
     Route: 048
  5. ALBUTEROL SULFATE [Suspect]
     Indication: ASTHMA
     Route: 049
     Dates: start: 20120106, end: 20120106
  6. THEOPHYLLINE-SR [Concomitant]
     Route: 048
  7. ATROVENT [Concomitant]
     Route: 049
  8. ALBUTEROL SULFATE [Concomitant]
     Indication: ASTHMA
     Route: 049

REACTIONS (5)
  - RESPIRATORY DISTRESS [None]
  - WHEEZING [None]
  - ASTHMA [None]
  - STATUS ASTHMATICUS [None]
  - CHRONIC OBSTRUCTIVE PULMONARY DISEASE [None]
